FAERS Safety Report 19814246 (Version 1)
Quarter: 2021Q3

REPORT INFORMATION
  Report Type: Spontaneous
  Country: FR (occurrence: FR)
  Receive Date: 20210909
  Receipt Date: 20210909
  Transmission Date: 20211014
  Serious: Yes (Other)
  Sender: FDA-Public Use
  Company Number: FR-TEVA-2021-FR-1934313

PATIENT
  Age: 65 Year
  Sex: Male
  Weight: 62 kg

DRUGS (2)
  1. DELURSAN [Suspect]
     Active Substance: URSODIOL
     Indication: CHOLESTASIS
     Dosage: 2 TABLETS IN THE MORNING AND IN THE EVENING
     Route: 048
     Dates: start: 20210427, end: 20210526
  2. DELURSAN [Suspect]
     Active Substance: URSODIOL
     Dosage: 3 TABLETS PER DAY
     Dates: start: 20210611

REACTIONS (4)
  - Anxiety [Not Recovered/Not Resolved]
  - Dyspnoea [Not Recovered/Not Resolved]
  - Dystonia [Recovered/Resolved]
  - Dysphonia [Not Recovered/Not Resolved]

NARRATIVE: CASE EVENT DATE: 2021
